FAERS Safety Report 12076983 (Version 2)
Quarter: 2016Q2

REPORT INFORMATION
  Report Type: Spontaneous
  Country: JP (occurrence: JP)
  Receive Date: 20160215
  Receipt Date: 20160617
  Transmission Date: 20160815
  Serious: Yes (Hospitalization)
  Sender: FDA-Public Use
  Company Number: JP-ASTRAZENECA-2016SE14796

PATIENT
  Age: 84 Year
  Sex: Female
  Weight: 45 kg

DRUGS (12)
  1. NICORANDIL [Concomitant]
     Active Substance: NICORANDIL
     Dosage: 10 MILLIGRAMS, NUMBER OF SEPARATE DOSAGES UNKNOWN
     Route: 048
     Dates: start: 20130115
  2. CYTOTEC [Concomitant]
     Active Substance: MISOPROSTOL
     Dosage: 200 MICROGRAMS, NUMBER OF SEPARATE DOSAGES UNKNOWN
     Route: 048
     Dates: start: 20120601
  3. LUSEFI [Concomitant]
     Route: 048
     Dates: start: 20140813
  4. INSULIN [Concomitant]
     Active Substance: INSULIN NOS
     Indication: TYPE 2 DIABETES MELLITUS
  5. MICARDIS [Concomitant]
     Active Substance: TELMISARTAN
     Route: 048
     Dates: start: 20130420
  6. ARTIST [Concomitant]
     Active Substance: CARVEDILOL
     Route: 048
  7. BYDUREON [Suspect]
     Active Substance: EXENATIDE
     Indication: TYPE 2 DIABETES MELLITUS
     Dosage: 2 MG ONCE A WEEK, ADMINISTERED FOR FOUR TIMES IN TOTAL
     Route: 058
     Dates: start: 20151229, end: 20160119
  8. PLAVIX [Concomitant]
     Active Substance: CLOPIDOGREL BISULFATE
     Route: 048
  9. PARIET [Concomitant]
     Active Substance: RABEPRAZOLE SODIUM
     Dosage: 10 MG, NUMBER OF SEPARATE DOSAGES UNKNOWN
     Route: 048
  10. EQUA [Concomitant]
     Active Substance: VILDAGLIPTIN
     Route: 048
     Dates: start: 20140304
  11. BAYASPIRIN [Concomitant]
     Active Substance: ASPIRIN
     Dosage: 100 MG, NUMBER OF SEPARATE DOSAGES UNKNOWN
     Route: 048
  12. VITAMINS NOS [Concomitant]
     Active Substance: VITAMINS
     Dosage: 10 MICROGRAMS, NUMBER OF SEPARATE DOSAGES UNKNOWN
     Route: 048
     Dates: start: 20101210

REACTIONS (5)
  - Gastrooesophageal reflux disease [Unknown]
  - Gastric ulcer [Recovered/Resolved]
  - Decreased appetite [Recovered/Resolved]
  - Stress [Unknown]
  - Vomiting [Recovered/Resolved]

NARRATIVE: CASE EVENT DATE: 20160112
